FAERS Safety Report 5170150-3 (Version None)
Quarter: 2006Q4

REPORT INFORMATION
  Report Type: 
  Country: None (occurrence: None)
  Receive Date: 20061204
  Receipt Date: 20061204
  Transmission Date: 20070319
  Serious: Yes (Death)
  Sender: FDA-Public Use
  Company Number: 2006SP000766

PATIENT
  Age: 32 Year
  Sex: Male

DRUGS (19)
  1. POSACONAZOLE [Suspect]
     Indication: FUNGAL SKIN INFECTION
     Dosage: 800 MG; QD; PO
     Route: 048
     Dates: start: 20060901, end: 20060904
  2. POSACONAZOLE [Suspect]
     Indication: SCEDOSPORIUM INFECTION
     Dosage: 800 MG; QD; PO
     Route: 048
     Dates: start: 20060901, end: 20060904
  3. SYMBICORT [Concomitant]
  4. DURAGESIC-100 [Concomitant]
  5. XANAX [Concomitant]
  6. MOXON [Concomitant]
  7. PERINDOPRIL ERBUMINE [Concomitant]
  8. LANTUS [Concomitant]
  9. NOVORAPID [Concomitant]
  10. MINIPRESS [Concomitant]
  11. VANCOMYCIN HCL [Concomitant]
  12. INDERAL [Concomitant]
  13. AMLOR [Concomitant]
  14. DUOVENT [Concomitant]
  15. MS DIRECT [Concomitant]
  16. BURINEX [Concomitant]
  17. PENTACARINAT [Concomitant]
  18. VFEND [Concomitant]
  19. ABELCET [Concomitant]

REACTIONS (4)
  - DISEASE PROGRESSION [None]
  - FUNGAL SKIN INFECTION [None]
  - SCEDOSPORIUM INFECTION [None]
  - SHOCK [None]
